FAERS Safety Report 6660321-9 (Version None)
Quarter: 2010Q1

REPORT INFORMATION
  Report Type: 
  Country: None (occurrence: None)
  Receive Date: 20100331
  Receipt Date: 20100305
  Transmission Date: 20100710
  Serious: No
  Sender: FDA-Public Use
  Company Number: 2010BI005790

PATIENT
  Age: 33 Year
  Sex: Male

DRUGS (1)
  1. TYSABRI [Suspect]
     Indication: MULTIPLE SCLEROSIS
     Route: 042
     Dates: start: 20090611

REACTIONS (19)
  - ABDOMINAL PAIN UPPER [None]
  - ABNORMAL DREAMS [None]
  - ANGER [None]
  - ANXIETY [None]
  - BRONCHITIS [None]
  - COLD SWEAT [None]
  - DIARRHOEA [None]
  - FLUID INTAKE REDUCED [None]
  - GASTROINTESTINAL PAIN [None]
  - HYPOPHAGIA [None]
  - INFLUENZA LIKE ILLNESS [None]
  - INTERVERTEBRAL DISC DEGENERATION [None]
  - INTERVERTEBRAL DISC PROTRUSION [None]
  - MALAISE [None]
  - NECK PAIN [None]
  - SINUSITIS [None]
  - VITAMIN D DECREASED [None]
  - VOMITING [None]
  - WEIGHT DECREASED [None]
